FAERS Safety Report 7570564-8 (Version None)
Quarter: 2011Q2

REPORT INFORMATION
  Report Type: 
  Country: None (occurrence: None)
  Receive Date: 20110624
  Receipt Date: 20110404
  Transmission Date: 20111010
  Serious: No
  Sender: FDA-Public Use
  Company Number: US-ALLERGAN-1104674US

PATIENT
  Age: 49 Year
  Sex: Female

DRUGS (2)
  1. LATISSE [Suspect]
     Indication: HYPOTRICHOSIS
     Dosage: 1 GTT, QHS
     Route: 061
     Dates: start: 20090901
  2. LATISSE [Suspect]
     Dosage: 1 GTT, UNK
     Dates: start: 20101101, end: 20101201

REACTIONS (3)
  - SKIN HYPERPIGMENTATION [None]
  - HAIR GROWTH ABNORMAL [None]
  - INAPPROPRIATE SCHEDULE OF DRUG ADMINISTRATION [None]
